FAERS Safety Report 17956563 (Version 1)
Quarter: 2020Q2

REPORT INFORMATION
  Report Type: Spontaneous
  Country: US (occurrence: US)
  Receive Date: 20200627
  Receipt Date: 20200627
  Transmission Date: 20200714
  Serious: No
  Sender: FDA-Public Use
  Company Number: None

PATIENT
  Age: 39 Year
  Sex: Female
  Weight: 47.25 kg

DRUGS (1)
  1. NO GERM HAND SANITIZER (ORGANIC LEMON) [Suspect]
     Active Substance: HERBALS
     Indication: INFECTION PROPHYLAXIS
     Dates: start: 20200501, end: 20200620

REACTIONS (3)
  - Skin exfoliation [None]
  - Vision blurred [None]
  - Vomiting [None]

NARRATIVE: CASE EVENT DATE: 20200601
